FAERS Safety Report 9748517 (Version 1)
Quarter: 2013Q4

REPORT INFORMATION
  Report Type: Spontaneous
  Country: US (occurrence: None)
  Receive Date: 20131209
  Receipt Date: 20131209
  Transmission Date: 20140711
  Serious: Yes (Other)
  Sender: FDA-Public Use
  Company Number: US-MDCO-13-00051

PATIENT
  Age: 70 Year
  Sex: Male

DRUGS (4)
  1. ANGIOMAX [Suspect]
     Indication: PERCUTANEOUS CORONARY INTERVENTION
     Route: 040
     Dates: start: 20131118, end: 20131118
  2. ASPIRIN (ACETYLSALICYLIC ACID) (ACETYSALICYLIC ACID) [Concomitant]
  3. PLAVIX (CLOPIDOGREL BISULFATE) (CLOPIDOGREL BISULFATE) [Concomitant]
  4. HEPARIN (HEPARIN) (HEPARIN) [Concomitant]

REACTIONS (1)
  - Coronary artery thrombosis [None]
